FAERS Safety Report 9016433 (Version 1)
Quarter: 2013Q1

REPORT INFORMATION
  Report Type: Spontaneous
  Country: FR (occurrence: FR)
  Receive Date: 20130116
  Receipt Date: 20130116
  Transmission Date: 20140127
  Serious: Yes (Congenital Anomaly)
  Sender: FDA-Public Use
  Company Number: FR-GLAXOSMITHKLINE-B0857062B

PATIENT
  Age: 0 None
  Sex: Female

DRUGS (2)
  1. LAMICTAL [Suspect]
     Indication: EPILEPSY
     Route: 064
     Dates: end: 20120830
  2. EPITOMAX [Suspect]
     Indication: EPILEPSY
     Route: 064
     Dates: end: 20120830

REACTIONS (3)
  - Fallot^s tetralogy [Recovered/Resolved with Sequelae]
  - Congenital hand malformation [Recovered/Resolved with Sequelae]
  - Foetal exposure during pregnancy [Unknown]
